FAERS Safety Report 21927713 (Version 3)
Quarter: 2023Q4

REPORT INFORMATION
  Report Type: Spontaneous
  Country: US (occurrence: US)
  Receive Date: 20230130
  Receipt Date: 20231120
  Transmission Date: 20240110
  Serious: Yes (Other)
  Sender: FDA-Public Use
  Company Number: US-PFIZER INC-PV202300015961

PATIENT
  Age: 76 Year
  Sex: Male
  Weight: 49.887 kg

DRUGS (7)
  1. MORPHINE SULFATE [Suspect]
     Active Substance: MORPHINE SULFATE
     Dosage: 60 MG, 2X/DAY
  2. BRAFTOVI [Concomitant]
     Active Substance: ENCORAFENIB
     Indication: Neoplasm malignant
     Dosage: 150 MG, 2X/DAY
     Dates: start: 20230123
  3. METOPROLOL [Concomitant]
     Active Substance: METOPROLOL
     Indication: Cardiac disorder
     Dosage: 1 DF, DAILY
     Dates: start: 2021
  4. HYDROCHLOROTHIAZIDE [Concomitant]
     Active Substance: HYDROCHLOROTHIAZIDE
     Indication: Diuretic therapy
     Dosage: 25 MG, DAILY
     Dates: start: 2021
  5. LISINOPRIL [Concomitant]
     Active Substance: LISINOPRIL
     Indication: Diuretic therapy
     Dosage: 25 MG, DAILY
     Dates: start: 2021
  6. CLOPIDOGREL [Concomitant]
     Active Substance: CLOPIDOGREL BISULFATE
     Indication: Blood pressure management
     Dosage: 75 MG, DAILY
     Dates: start: 2022
  7. HYDROMORPHONE [Concomitant]
     Active Substance: HYDROMORPHONE
     Dosage: 4 MG, AS NEEDED

REACTIONS (6)
  - Exostosis of jaw [Unknown]
  - Blindness unilateral [Unknown]
  - Rash pruritic [Unknown]
  - Dry skin [Unknown]
  - Pain [Unknown]
  - Psychomotor skills impaired [Unknown]
